FAERS Safety Report 6321315-6 (Version None)
Quarter: 2009Q3

REPORT INFORMATION
  Report Type: 
  Country: None (occurrence: None)
  Receive Date: 20090822
  Receipt Date: 20090112
  Transmission Date: 20100115
  Serious: No
  Sender: FDA-Public Use
  Company Number: US-ABBOTT-09P-163-0497393-00

PATIENT
  Sex: Male
  Weight: 86.26 kg

DRUGS (2)
  1. NIASPAN [Suspect]
     Indication: DRUG USE FOR UNKNOWN INDICATION
     Dates: start: 20081215
  2. CATAWIT [Concomitant]
     Indication: BLOOD PRESSURE
     Dates: start: 20081215

REACTIONS (2)
  - BLOOD PRESSURE DECREASED [None]
  - FLUSHING [None]
